FAERS Safety Report 8189319-9 (Version None)
Quarter: 2012Q1

REPORT INFORMATION
  Report Type: 
  Country: None (occurrence: None)
  Receive Date: 20120302
  Receipt Date: 20120218
  Transmission Date: 20120608
  Serious: Yes (Hospitalization)
  Sender: FDA-Public Use
  Company Number: 2012AP000461

PATIENT
  Age: 36 Year
  Sex: Female

DRUGS (6)
  1. LAMOTRIGINE [Concomitant]
  2. TOPIRAMATE [Suspect]
     Indication: PRODUCT USED FOR UNKNOWN INDICATION
     Dosage: 100 MG; PO; QD ; 75 MG; PO; QD ; 50 MG; PO; QD
     Route: 048
  3. CLONAZEPAM [Concomitant]
  4. BENZTROPINE MESYLATE [Concomitant]
  5. ZUCLOPENTHIXOL (ZUCLOPENTHIXOL) [Concomitant]
  6. CITALOPRAM HYDROBROMIDE [Concomitant]

REACTIONS (12)
  - DYSPHORIA [None]
  - VIITH NERVE PARALYSIS [None]
  - COGNITIVE DISORDER [None]
  - DYSARTHRIA [None]
  - GAIT DISTURBANCE [None]
  - HALLUCINATION [None]
  - FLAT AFFECT [None]
  - NEUROLOGICAL SYMPTOM [None]
  - FALL [None]
  - MOTOR DYSFUNCTION [None]
  - HEADACHE [None]
  - HEMIPARESIS [None]
